FAERS Safety Report 8087644-3 (Version None)
Quarter: 2012Q1

REPORT INFORMATION
  Report Type: 
  Country: None (occurrence: None)
  Receive Date: 20120128
  Receipt Date: 20110407
  Transmission Date: 20120608
  Serious: No
  Sender: FDA-Public Use
  Company Number: US-ABBOTT-11P-163-0717916-00

PATIENT
  Sex: Female
  Weight: 71.732 kg

DRUGS (12)
  1. EXFORGE [Concomitant]
     Indication: HYPERTENSION
     Dates: start: 20110201
  2. NEXIUM [Concomitant]
     Indication: GASTROOESOPHAGEAL REFLUX DISEASE
  3. SPIRIVA [Concomitant]
     Indication: CHRONIC OBSTRUCTIVE PULMONARY DISEASE
     Route: 055
  4. HUMIRA [Suspect]
     Indication: RHEUMATOID ARTHRITIS
     Dates: start: 20101201
  5. LIPITOR [Concomitant]
     Indication: BLOOD CHOLESTEROL INCREASED
     Dates: end: 20110405
  6. SINGULAIR [Concomitant]
     Indication: HYPERSENSITIVITY
  7. PAXIL CR [Concomitant]
     Indication: ANXIETY
  8. ACTONEL [Concomitant]
     Indication: OSTEOPOROSIS
  9. VISTARIL [Concomitant]
     Indication: HYPERSENSITIVITY
  10. ALPRAZOLAM [Concomitant]
     Indication: ANXIETY
  11. LEVOTHYROXINE SODIUM [Concomitant]
     Indication: HYPOTHYROIDISM
  12. VITAMIN D [Concomitant]
     Indication: VITAMIN SUPPLEMENTATION
     Dosage: Q WEEK

REACTIONS (5)
  - MALAISE [None]
  - HEPATIC ENZYME INCREASED [None]
  - BLOOD UREA INCREASED [None]
  - FATIGUE [None]
  - ASTHENIA [None]
